FAERS Safety Report 5759813-6 (Version None)
Quarter: 2008Q2

REPORT INFORMATION
  Report Type: 
  Country: None (occurrence: None)
  Receive Date: 20080605
  Receipt Date: 20080527
  Transmission Date: 20081010
  Serious: Yes (Hospitalization)
  Sender: FDA-Public Use
  Company Number: ES-ASTRAZENECA-2008AC01340

PATIENT
  Age: 14224 Day
  Sex: Female

DRUGS (4)
  1. QUETIAPINE FUMARATE [Suspect]
     Indication: BIPOLAR DISORDER
     Route: 048
     Dates: start: 20071008, end: 20080226
  2. HIDBOALTESONA [Concomitant]
     Indication: ADRENAL INSUFFICIENCY
     Route: 048
     Dates: start: 20071201
  3. LITHIUM CARBONATE [Concomitant]
     Indication: BIPOLAR DISORDER
     Route: 048
     Dates: start: 19940216
  4. RIVOTRIL [Concomitant]
     Indication: INSOMNIA
     Route: 048
     Dates: start: 19950509

REACTIONS (1)
  - BIPOLAR DISORDER [None]
